FAERS Safety Report 7684900-5 (Version None)
Quarter: 2011Q3

REPORT INFORMATION
  Report Type: 
  Country: None (occurrence: None)
  Receive Date: 20110816
  Receipt Date: 20110802
  Transmission Date: 20111222
  Serious: Yes (Hospitalization, Other)
  Sender: FDA-Public Use
  Company Number: RS-PAR PHARMACEUTICAL, INC-2011SCPR003159

PATIENT

DRUGS (2)
  1. ETHANOL [Suspect]
     Indication: PRODUCT USED FOR UNKNOWN INDICATION
     Dosage: UNK, UNKNOWN
     Route: 048
  2. PROPRANOLOL HYDROCHLORIDE [Suspect]
     Indication: PRODUCT USED FOR UNKNOWN INDICATION
     Dosage: 3.6 G
     Route: 048

REACTIONS (10)
  - TACHYCARDIA [None]
  - SHOCK [None]
  - OVERDOSE [None]
  - HYPOGLYCAEMIA [None]
  - RESPIRATORY FAILURE [None]
  - ARRHYTHMIA [None]
  - BLOOD GLUCOSE INCREASED [None]
  - CONVULSION [None]
  - COMA [None]
  - TOXICITY TO VARIOUS AGENTS [None]
